FAERS Safety Report 6911493-X (Version None)
Quarter: 2010Q3

REPORT INFORMATION
  Report Type: 
  Country: None (occurrence: None)
  Receive Date: 20100806
  Receipt Date: 20100802
  Transmission Date: 20110219
  Serious: Yes (Death, Other)
  Sender: FDA-Public Use
  Company Number: US-ELI_LILLY_AND_COMPANY-US201008000594

PATIENT
  Age: 61 Year
  Sex: Male

DRUGS (1)
  1. CIALIS [Suspect]
     Dosage: 20 MG, UNK

REACTIONS (4)
  - CARDIOMEGALY [None]
  - FALL [None]
  - HEAD INJURY [None]
  - MYOCARDIAL INFARCTION [None]
